FAERS Safety Report 10086952 (Version 4)
Quarter: 2014Q2

REPORT INFORMATION
  Report Type: Report from Study
  Country: BR (occurrence: BR)
  Receive Date: 20140418
  Receipt Date: 20140619
  Transmission Date: 20141212
  Serious: Yes (Death, Other)
  Sender: FDA-Public Use
  Company Number: PHHY2014BR022032

PATIENT
  Age: 72 Year
  Sex: Male
  Weight: 48 kg

DRUGS (4)
  1. EXELON PATCH [Suspect]
     Indication: DEMENTIA ALZHEIMER^S TYPE
     Dosage: 9 MG/5CM2 DAILY (DAILY DOSE: 4.6 MG /24 HOURS)
     Route: 062
  2. EXELON PATCH [Suspect]
     Dosage: 18 MG/CM2 DAILY (DAILY DOSE: 9.5 MG/24 HOURS)
     Route: 062
  3. EXELON PATCH [Suspect]
     Dosage: 27 MG/15CM2 DAILY (DAILY DOSE: 13.3 G/24 HOURS)
     Route: 062
  4. NEOTIAPIM [Concomitant]
     Indication: SEDATION
     Dosage: 1 DF, DAILY

REACTIONS (8)
  - Death [Fatal]
  - Movement disorder [Not Recovered/Not Resolved]
  - General physical health deterioration [Unknown]
  - Gait disturbance [Not Recovered/Not Resolved]
  - Dysphagia [Not Recovered/Not Resolved]
  - Reflexes abnormal [Unknown]
  - Weight decreased [Not Recovered/Not Resolved]
  - Dizziness [Unknown]
